FAERS Safety Report 20423774 (Version 6)
Quarter: 2022Q1

REPORT INFORMATION
  Report Type: Report from Study
  Country: GB (occurrence: GB)
  Receive Date: 20220203
  Receipt Date: 20220329
  Transmission Date: 20220423
  Serious: Yes (Hospitalization, Other)
  Sender: FDA-Public Use
  Company Number: GB-JNJFOC-20220138539

PATIENT
  Age: 6 Decade
  Sex: Female

DRUGS (2)
  1. STELARA [Suspect]
     Active Substance: USTEKINUMAB
     Indication: Crohn^s disease
     Dosage: STRENGTH: 90.00 MG/ML
     Route: 058
     Dates: start: 20200122
  2. STELARA [Suspect]
     Active Substance: USTEKINUMAB
     Dosage: STRENGTH: 90.00 MG/ML
     Route: 058
     Dates: start: 20220201

REACTIONS (5)
  - Surgery [Unknown]
  - Crohn^s disease [Unknown]
  - Syringe issue [Unknown]
  - Product dose omission issue [Unknown]
  - Drug ineffective [Unknown]

NARRATIVE: CASE EVENT DATE: 20220101
